FAERS Safety Report 24161461 (Version 1)
Quarter: 2024Q3

REPORT INFORMATION
  Report Type: Spontaneous
  Country: US (occurrence: US)
  Receive Date: 20240801
  Receipt Date: 20240801
  Transmission Date: 20241017
  Serious: No
  Sender: SANOFI AVENTIS
  Company Number: US-SA-SAC20240716000188

PATIENT
  Sex: Female
  Weight: 74 kg

DRUGS (1)
  1. DUPIXENT [Suspect]
     Active Substance: DUPILUMAB
     Indication: Dermatitis atopic
     Dosage: DOSE AND ROUTE: - 300 MG (1 PRE-FILLED SYRINGE) UNDER THE SKIN FREQUENCY: - EVERY 14 DAYS
     Route: 058

REACTIONS (2)
  - Dry skin [Unknown]
  - Drug ineffective [Unknown]
